FAERS Safety Report 18399167 (Version 1)
Quarter: 2020Q4

REPORT INFORMATION
  Report Type: Spontaneous
  Country: ES (occurrence: ES)
  Receive Date: 20201019
  Receipt Date: 20201019
  Transmission Date: 20210114
  Serious: Yes (Life-Threatening, Hospitalization)
  Sender: FDA-Public Use
  Company Number: ES-NOVOPROD-758720

PATIENT
  Age: 65 Year
  Sex: Male
  Weight: 132 kg

DRUGS (1)
  1. OZEMPIC [Suspect]
     Active Substance: SEMAGLUTIDE
     Indication: DIABETES MELLITUS
     Dosage: 0.5 MG
     Route: 058
     Dates: start: 20200727, end: 20200818

REACTIONS (3)
  - Metabolic acidosis [Recovered/Resolved]
  - Renal failure [Recovered/Resolved]
  - Diarrhoea [Recovered/Resolved]

NARRATIVE: CASE EVENT DATE: 20200814
